FAERS Safety Report 7159397-4 (Version None)
Quarter: 2010Q4

REPORT INFORMATION
  Report Type: 
  Country: None (occurrence: None)
  Receive Date: 20101214
  Receipt Date: 20101004
  Transmission Date: 20110411
  Serious: Yes (Other)
  Sender: FDA-Public Use
  Company Number: US-ASTRAZENECA-2010SE40669

PATIENT
  Age: 17321 Day
  Sex: Female
  Weight: 120.2 kg

DRUGS (10)
  1. CRESTOR [Suspect]
     Indication: HYPERCHOLESTEROLAEMIA
     Route: 048
     Dates: start: 20100401, end: 20100801
  2. CRESTOR [Suspect]
     Indication: HYPERLIPIDAEMIA
     Route: 048
     Dates: start: 20100401, end: 20100801
  3. CRESTOR [Suspect]
     Route: 048
     Dates: start: 20100401, end: 20100801
  4. SYNTHROID [Concomitant]
     Indication: HYPOTHYROIDISM
     Dates: start: 20000101
  5. BENICAR [Concomitant]
     Indication: HYPERTENSION
     Route: 048
     Dates: start: 20080527
  6. ASPIRIN [Concomitant]
  7. AMBIEN [Concomitant]
  8. NOVOLOG [Concomitant]
     Indication: TYPE 2 DIABETES MELLITUS
     Dosage: 40 U
     Route: 058
     Dates: start: 20071117
  9. LEVEMIR [Concomitant]
     Indication: TYPE 2 DIABETES MELLITUS
     Dosage: 40 U
     Route: 058
     Dates: start: 20071117
  10. INSULIN [Concomitant]
     Indication: TYPE 1 DIABETES MELLITUS
     Dosage: 15 UNIT IRREGULARLY
     Route: 058
     Dates: start: 20071107

REACTIONS (1)
  - RHABDOMYOLYSIS [None]
